FAERS Safety Report 9631767 (Version 1)
Quarter: 2013Q4

REPORT INFORMATION
  Report Type: Spontaneous
  Country: US (occurrence: US)
  Receive Date: 20131018
  Receipt Date: 20131018
  Transmission Date: 20140711
  Serious: Yes (Hospitalization)
  Sender: FDA-Public Use
  Company Number: US-JNJFOC-20131007234

PATIENT
  Age: 37 Year
  Sex: Male

DRUGS (2)
  1. RISPERDAL [Suspect]
     Indication: SCHIZOPHRENIA
     Dosage: IN THE EVENING
     Route: 048
  2. TRAZODONE [Concomitant]
     Route: 048

REACTIONS (3)
  - Hospitalisation [Unknown]
  - Imprisonment [Unknown]
  - Treatment noncompliance [Unknown]
